FAERS Safety Report 25329144 (Version 4)
Quarter: 2025Q4

REPORT INFORMATION
  Report Type: Report from Study
  Country: KR (occurrence: KR)
  Receive Date: 20250519
  Receipt Date: 20251014
  Transmission Date: 20260118
  Serious: Yes (Other)
  Sender: NOVARTIS
  Company Number: KR-002147023-NVSC2025KR077386

PATIENT
  Age: 49 Year
  Sex: Female

DRUGS (13)
  1. KISQALI [Suspect]
     Active Substance: RIBOCICLIB SUCCINATE
     Indication: Hormone receptor positive HER2 negative breast cancer
     Dosage: 600 MG, QD
     Route: 048
     Dates: start: 20240521, end: 20240610
  2. KISQALI [Suspect]
     Active Substance: RIBOCICLIB SUCCINATE
     Dosage: 600 MG, QD
     Route: 048
     Dates: start: 20240618, end: 20240708
  3. KISQALI [Suspect]
     Active Substance: RIBOCICLIB SUCCINATE
     Dosage: 600 MG, QD
     Route: 048
     Dates: start: 20240716, end: 20240805
  4. KISQALI [Suspect]
     Active Substance: RIBOCICLIB SUCCINATE
     Dosage: 600 MG, QD
     Route: 048
     Dates: start: 20240813, end: 20240902
  5. KISQALI [Suspect]
     Active Substance: RIBOCICLIB SUCCINATE
     Dosage: 600 MG, QD
     Route: 048
     Dates: start: 20240910, end: 20240930
  6. KISQALI [Suspect]
     Active Substance: RIBOCICLIB SUCCINATE
     Dosage: 600 MG, QD
     Route: 048
     Dates: start: 20241008, end: 20241028
  7. KISQALI [Suspect]
     Active Substance: RIBOCICLIB SUCCINATE
     Dosage: UNK
     Route: 065
  8. CARVEDILOL [Concomitant]
     Active Substance: CARVEDILOL
     Indication: Hypertension
     Dosage: 3.125 MG, QD
     Route: 048
     Dates: start: 20240501
  9. Renalmin [Concomitant]
     Indication: Chronic kidney disease
     Dosage: 1 DOSAGE FORM, QD
     Route: 048
     Dates: start: 20240501
  10. Atozeti [Concomitant]
     Indication: Dyslipidaemia
     Dosage: 1 DOSAGE FORM
     Route: 048
     Dates: start: 20240501
  11. Bretra [Concomitant]
     Indication: Hormone therapy
     Dosage: 2.5 MG, QD
     Route: 048
     Dates: start: 20240521
  12. MIRCERA [Concomitant]
     Active Substance: METHOXY POLYETHYLENE GLYCOL-EPOETIN BETA
     Indication: Prophylaxis
     Dosage: 100 UG, QD
     Route: 058
     Dates: start: 20240903, end: 20240903
  13. MIRCERA [Concomitant]
     Active Substance: METHOXY POLYETHYLENE GLYCOL-EPOETIN BETA
     Dosage: 100 UG, QD
     Route: 058
     Dates: start: 20241016, end: 20241016

REACTIONS (10)
  - Neutropenia [Recovered/Resolved with Sequelae]
  - Hyperkalaemia [Recovered/Resolved]
  - Neutropenia [Not Recovered/Not Resolved]
  - Decreased appetite [Recovered/Resolved]
  - Haemoglobin decreased [Recovered/Resolved with Sequelae]
  - Blood creatinine increased [Not Recovered/Not Resolved]
  - Haemoglobin decreased [Recovered/Resolved with Sequelae]
  - Blood alkaline phosphatase increased [Not Recovered/Not Resolved]
  - Hypocalcaemia [Not Recovered/Not Resolved]
  - Haemoglobin decreased [Not Recovered/Not Resolved]

NARRATIVE: CASE EVENT DATE: 20240618
